FAERS Safety Report 26125901 (Version 1)
Quarter: 2025Q4

REPORT INFORMATION
  Report Type: Spontaneous
  Country: US (occurrence: None)
  Receive Date: 20251204
  Receipt Date: 20251204
  Transmission Date: 20260118
  Serious: No
  Sender: FDA-CTU
  Company Number: None

PATIENT

DRUGS (10)
  1. GLIMEPIRIDE [Suspect]
     Active Substance: GLIMEPIRIDE
  2. TRULICITY [Suspect]
     Active Substance: DULAGLUTIDE
  3. FARXIGA [Suspect]
     Active Substance: DAPAGLIFLOZIN PROPANEDIOL
  4. METFORMIN [Suspect]
     Active Substance: METFORMIN HYDROCHLORIDE
  5. METFORMIN HYDROCHLORIDE\SITAGLIPTIN [Suspect]
     Active Substance: METFORMIN HYDROCHLORIDE\SITAGLIPTIN
  6. HUMALOG [Suspect]
     Active Substance: INSULIN LISPRO
  7. VICTOZA [Suspect]
     Active Substance: LIRAGLUTIDE
  8. JARDIANCE [Suspect]
     Active Substance: EMPAGLIFLOZIN
  9. JANUVIA [Suspect]
     Active Substance: SITAGLIPTIN PHOSPHATE
  10. GLIPIZIDE [Suspect]
     Active Substance: GLIPIZIDE

REACTIONS (2)
  - Drug hypersensitivity [None]
  - Treatment failure [None]

NARRATIVE: CASE EVENT DATE: 20251204
